FAERS Safety Report 16772714 (Version 1)
Quarter: 2019Q3

REPORT INFORMATION
  Report Type: Report from Study
  Country: US (occurrence: US)
  Receive Date: 20190904
  Receipt Date: 20190904
  Transmission Date: 20191005
  Serious: Yes (Hospitalization)
  Sender: FDA-Public Use
  Company Number: US-AMGEN-USASL2019139343

PATIENT
  Age: 52 Year
  Sex: Female

DRUGS (1)
  1. REPATHA [Suspect]
     Active Substance: EVOLOCUMAB
     Indication: LOW DENSITY LIPOPROTEIN INCREASED
     Dosage: 140 MILLIGRAM, Q2WK
     Route: 065

REACTIONS (9)
  - Splenomegaly [Unknown]
  - Renal disorder [Unknown]
  - Rhinorrhoea [Unknown]
  - Dyspnoea [Unknown]
  - Injection site pain [Unknown]
  - Colitis [Unknown]
  - Lymphadenopathy [Unknown]
  - Liver disorder [Unknown]
  - Headache [Unknown]

NARRATIVE: CASE EVENT DATE: 2019
